FAERS Safety Report 23108490 (Version 1)
Quarter: 2023Q4

REPORT INFORMATION
  Report Type: Spontaneous
  Country: KR (occurrence: KR)
  Receive Date: 20231026
  Receipt Date: 20231026
  Transmission Date: 20240110
  Serious: Yes (Other)
  Sender: FDA-Public Use
  Company Number: KR-CPL-003727

PATIENT
  Age: 72 Year
  Sex: Male

DRUGS (1)
  1. METRONIDAZOLE [Suspect]
     Active Substance: METRONIDAZOLE
     Indication: Postoperative wound infection
     Route: 048

REACTIONS (8)
  - Toxicity to various agents [Unknown]
  - Encephalopathy [Recovered/Resolved]
  - Polyneuropathy [Unknown]
  - Lumbar radiculopathy [Unknown]
  - Saccadic eye movement [Recovered/Resolved]
  - Dysmetria [Recovered/Resolved]
  - Ataxia [Recovered/Resolved]
  - Gait inability [Recovered/Resolved]
